FAERS Safety Report 7421507-9 (Version None)
Quarter: 2011Q2

REPORT INFORMATION
  Report Type: 
  Country: None (occurrence: None)
  Receive Date: 20110418
  Receipt Date: 20110407
  Transmission Date: 20111010
  Serious: Yes (Other)
  Sender: FDA-Public Use
  Company Number: CA-ASTRAZENECA-2011SE06740

PATIENT
  Age: 83 Year
  Sex: Female

DRUGS (10)
  1. OXEZE TURBUHALER [Suspect]
     Route: 055
  2. PULMICORT [Suspect]
     Indication: ASTHMA
     Route: 055
     Dates: start: 20101001
  3. OXEZE TURBUHALER [Suspect]
     Route: 055
  4. SYMBICORT [Suspect]
     Indication: CHRONIC OBSTRUCTIVE PULMONARY DISEASE
     Route: 055
     Dates: start: 20100901, end: 20100909
  5. PULMICORT [Suspect]
     Route: 055
  6. PULMICORT [Suspect]
     Route: 055
  7. SYMBICORT [Suspect]
     Indication: ASTHMA
     Route: 055
     Dates: start: 20100901, end: 20100909
  8. PULMICORT [Suspect]
     Indication: CHRONIC OBSTRUCTIVE PULMONARY DISEASE
     Route: 055
     Dates: start: 20101001
  9. OXEZE TURBUHALER [Suspect]
     Indication: CHRONIC OBSTRUCTIVE PULMONARY DISEASE
     Route: 055
     Dates: start: 20000101
  10. OXEZE TURBUHALER [Suspect]
     Indication: ASTHMA
     Route: 055
     Dates: start: 20000101

REACTIONS (5)
  - PHARYNGEAL OEDEMA [None]
  - DRUG DOSE OMISSION [None]
  - OROPHARYNGEAL PAIN [None]
  - DIZZINESS [None]
  - SWOLLEN TONGUE [None]
